FAERS Safety Report 7371550-3 (Version None)
Quarter: 2011Q1

REPORT INFORMATION
  Report Type: 
  Country: None (occurrence: None)
  Receive Date: 20110324
  Receipt Date: 20110315
  Transmission Date: 20110831
  Serious: Yes (Death, Hospitalization)
  Sender: FDA-Public Use
  Company Number: DE-SANOFI-AVENTIS-2011SA005420

PATIENT
  Age: 74 Year
  Sex: Male
  Weight: 108.8 kg

DRUGS (12)
  1. ENALAPRIL MALEATE AND HYDROCHLOROTHIAZIDE [Concomitant]
     Dates: start: 20040325
  2. CLOPIDOGREL [Concomitant]
     Dates: start: 20100621
  3. BISOPROLOL FUMARATE [Concomitant]
     Dates: start: 20040127
  4. MELATONIN [Concomitant]
     Dates: start: 20020704
  5. DICLOFENAC [Concomitant]
     Dates: start: 20070417
  6. VERAMEX [Concomitant]
     Dates: start: 19960919
  7. LEVOTHYROXINE SODIUM [Concomitant]
     Dates: start: 20040325
  8. ALLOPURINOL [Concomitant]
     Dates: start: 20040629
  9. METFORMIN HCL [Suspect]
  10. TAMSULOSIN HCL [Concomitant]
  11. GLIMEPIRIDE [Suspect]
     Dates: start: 20070216
  12. SIMVASTATIN [Concomitant]
     Dates: start: 20090213

REACTIONS (3)
  - METASTASES TO BONE [None]
  - METASTASES TO LIVER [None]
  - SMALL CELL LUNG CANCER STAGE UNSPECIFIED [None]
